FAERS Safety Report 5430032-6 (Version None)
Quarter: 2007Q3

REPORT INFORMATION
  Report Type: 
  Country: None (occurrence: None)
  Receive Date: 20070829
  Receipt Date: 20070817
  Transmission Date: 20080115
  Serious: Yes (Other)
  Sender: FDA-Public Use
  Company Number: JP-PFIZER INC-2007068669

PATIENT
  Age: 54 Year
  Sex: Female

DRUGS (4)
  1. ZYVOX [Suspect]
     Indication: DIABETIC GANGRENE
     Dosage: DAILY DOSE:1200MG
     Route: 042
  2. LOXONIN [Concomitant]
  3. MYONAL [Concomitant]
     Route: 048
  4. AMARYL [Concomitant]
     Route: 048

REACTIONS (1)
  - EPILEPSY [None]
